FAERS Safety Report 9022342 (Version 2)
Quarter: 2013Q2

REPORT INFORMATION
  Report Type: Spontaneous
  Country: IT (occurrence: IT)
  Receive Date: 20130118
  Receipt Date: 20130404
  Transmission Date: 20140414
  Serious: Yes (Other)
  Sender: FDA-Public Use
  Company Number: PHHY2013IT002808

PATIENT
  Sex: Female

DRUGS (3)
  1. ZOMETA [Suspect]
     Indication: BREAST CANCER STAGE IV
     Dosage: 4 MG, MONTHLY
     Route: 042
     Dates: start: 20081201, end: 20100601
  2. ZOMETA [Suspect]
     Dosage: UNK UKN, UNK
     Dates: start: 20110501, end: 20120201
  3. VITAMIN D [Concomitant]
     Indication: OSTEOPOROSIS
     Dosage: 30 DROP
     Route: 048
     Dates: start: 20090101

REACTIONS (1)
  - Osteonecrosis of jaw [Not Recovered/Not Resolved]
